FAERS Safety Report 21504325 (Version 1)
Quarter: 2022Q4

REPORT INFORMATION
  Report Type: Report from Study
  Country: BE (occurrence: BE)
  Receive Date: 20221025
  Receipt Date: 20221025
  Transmission Date: 20230112
  Serious: Yes (Hospitalization)
  Sender: FDA-Public Use
  Company Number: BE-Vifor Pharma-VIT-2022-06644

PATIENT
  Sex: Female
  Weight: 106 kg

DRUGS (13)
  1. DIFELIKEFALIN [Suspect]
     Active Substance: DIFELIKEFALIN
     Indication: Pruritus
     Dosage: 55 MICROGRAM
     Route: 042
     Dates: start: 20220907, end: 20220922
  2. GABAPENTIN [Concomitant]
     Active Substance: GABAPENTIN
     Indication: Pruritus
     Dates: start: 20220228, end: 20220921
  3. PREGABALIN [Concomitant]
     Active Substance: PREGABALIN
     Indication: Polyneuropathy
     Dates: start: 20190823, end: 20220921
  4. BISOPROLOL [Concomitant]
     Active Substance: BISOPROLOL
     Indication: Hypertension
     Dosage: COMPOUND 1 X 2.5 MILLIGRAMS
     Dates: start: 20170719
  5. LEVOTHYROXINE SODIUM [Concomitant]
     Active Substance: LEVOTHYROXINE SODIUM
     Indication: Hyperthyroidism
     Dosage: COMPOUND 1 X 150 MICROGRAMS
     Dates: start: 20220427
  6. LEVOCETIRIZINE [Concomitant]
     Active Substance: LEVOCETIRIZINE
     Indication: Pruritus
     Dosage: COMPOUND 1X 5 MILLIGRAMS
     Dates: start: 20220314
  7. LANTUS SOLOSTAR [Concomitant]
     Active Substance: INSULIN GLARGINE
     Indication: Diabetes mellitus
     Dosage: 14 UNITS
     Dates: start: 20181022
  8. NOVORAPID [Concomitant]
     Active Substance: INSULIN ASPART
     Indication: Diabetes mellitus
     Dates: start: 20220214
  9. RENVELA [Concomitant]
     Active Substance: SEVELAMER CARBONATE
     Indication: Hyperphosphataemia
     Dosage: COMPOUND 1 X 800 MILLIGRAMS
     Dates: start: 20220923
  10. BUMETANIDE [Concomitant]
     Active Substance: BUMETANIDE
     Indication: Hypervolaemia
     Dosage: COMPOUND 2X 5 MILLIGRAMS
     Dates: start: 20191113
  11. LIPITOR [Concomitant]
     Active Substance: ATORVASTATIN CALCIUM
     Indication: Hypercholesterolaemia
     Dosage: COMPOUND 1X 80 MILLIGRAMS
     Dates: start: 20161107
  12. SINTROM [Concomitant]
     Active Substance: ACENOCOUMAROL
     Indication: Cerebrovascular accident
     Dosage: COMPOUND 1 X 1 MILLIGRAMS
     Dates: start: 20210201
  13. KEPPRA [Concomitant]
     Active Substance: LEVETIRACETAM
     Indication: Epilepsy
     Dosage: 500 MG COMPOUND 1 X 500 MG
     Dates: start: 20210315

REACTIONS (3)
  - Dysstasia [Recovered/Resolved]
  - Somnolence [Recovered/Resolved]
  - Fall [Recovered/Resolved]

NARRATIVE: CASE EVENT DATE: 20220922
